FAERS Safety Report 15320760 (Version 1)
Quarter: 2018Q3

REPORT INFORMATION
  Report Type: Spontaneous
  Country: US (occurrence: US)
  Receive Date: 20180821
  Receipt Date: 20180821
  Transmission Date: 20181010
  Serious: Yes (Disabling)
  Sender: FDA-Public Use
  Company Number: None

PATIENT
  Age: 34 Year
  Sex: Female
  Weight: 68.04 kg

DRUGS (4)
  1. MIRENA [Suspect]
     Active Substance: LEVONORGESTREL
     Dates: start: 20121004, end: 20180802
  2. OXYCODONE [Concomitant]
     Active Substance: OXYCODONE
  3. LEXAPRO [Concomitant]
     Active Substance: ESCITALOPRAM OXALATE
  4. MULTIVITAMIN [Concomitant]
     Active Substance: VITAMINS

REACTIONS (19)
  - Fibromyalgia [None]
  - Amenorrhoea [None]
  - Visual impairment [None]
  - Weight increased [None]
  - Infertility [None]
  - Confusional state [None]
  - Fatigue [None]
  - Pelvic floor muscle weakness [None]
  - Cystitis interstitial [None]
  - Palpitations [None]
  - Alopecia [None]
  - Hypotension [None]
  - Nausea [None]
  - Uterine pain [None]
  - Arthralgia [None]
  - Neuropathy peripheral [None]
  - Pain [None]
  - Irritable bowel syndrome [None]
  - Panic attack [None]
